FAERS Safety Report 7422918-8 (Version None)
Quarter: 2011Q2

REPORT INFORMATION
  Report Type: 
  Country: None (occurrence: None)
  Receive Date: 20110414
  Receipt Date: 20110414
  Transmission Date: 20111010
  Serious: Yes (Hospitalization)
  Sender: FDA-Public Use
  Company Number: None

PATIENT
  Age: 77 Year
  Sex: Female
  Weight: 73 kg

DRUGS (12)
  1. ASPIRIN [Concomitant]
  2. POTASSIUM CHLORIDE [Concomitant]
  3. INDAPAMIDE [Concomitant]
  4. RANITIDINE [Concomitant]
  5. SIMVASTATIN [Concomitant]
  6. FLUTICASONE PROPIONATE [Concomitant]
  7. ATENOLOL [Concomitant]
  8. EZETIMIBE [Concomitant]
  9. AMLODIPINE [Concomitant]
  10. DONEPEZIL [Concomitant]
  11. SOLIFENACIN [Concomitant]
  12. EFFIENT [Suspect]
     Indication: CORONARY ARTERY DISEASE
     Dosage: 10 MG DAILY PO
     Route: 048
     Dates: start: 20100701, end: 20110412

REACTIONS (6)
  - VOMITING [None]
  - SHOCK HAEMORRHAGIC [None]
  - HAEMORRHAGE [None]
  - UPPER GASTROINTESTINAL HAEMORRHAGE [None]
  - NAUSEA [None]
  - ABDOMINAL PAIN [None]
